FAERS Safety Report 9013687 (Version 1)
Quarter: 2013Q1

REPORT INFORMATION
  Report Type: Spontaneous
  Country: US (occurrence: None)
  Receive Date: 20130108
  Receipt Date: 20130108
  Transmission Date: 20140127
  Serious: Yes (Life-Threatening, Hospitalization)
  Sender: FDA-Public Use
  Company Number: None

PATIENT
  Age: 52 Year
  Sex: Female
  Weight: 79.8 kg

DRUGS (1)
  1. IVIG [Suspect]

REACTIONS (6)
  - Nausea [None]
  - Vomiting [None]
  - Dyspnoea [None]
  - Abdominal pain [None]
  - Meningitis aseptic [None]
  - Headache [None]
